FAERS Safety Report 14332617 (Version 1)
Quarter: 2017Q4

REPORT INFORMATION
  Report Type: Spontaneous
  Country: GB (occurrence: GB)
  Receive Date: 20171228
  Receipt Date: 20171228
  Transmission Date: 20180321
  Serious: Yes (Disabling)
  Sender: FDA-Public Use
  Company Number: GB-009507513-1712GBR013779

PATIENT
  Age: 54 Year
  Sex: Female
  Weight: 57 kg

DRUGS (6)
  1. PEPPERMINT OIL [Concomitant]
     Active Substance: PEPPERMINT OIL
     Dosage: 3 DF, QD
     Dates: start: 20170720
  2. BISACODYL. [Concomitant]
     Active Substance: BISACODYL
     Dosage: AT NIGHT.
     Dates: start: 20171018
  3. ROSUVASTATIN. [Concomitant]
     Active Substance: ROSUVASTATIN
     Dosage: 1 DF, QD
     Dates: start: 20170720
  4. EZETIMIBE. [Concomitant]
     Active Substance: EZETIMIBE
     Dosage: 1 DF, QD
     Dates: start: 20170720
  5. MIRTAZAPINE. [Suspect]
     Active Substance: MIRTAZAPINE
     Dates: start: 20171214
  6. SERTRALINE HYDROCHLORIDE. [Concomitant]
     Active Substance: SERTRALINE HYDROCHLORIDE
     Dosage: AS DIRECTED BY DOCTOR.
     Dates: start: 20171124, end: 20171213

REACTIONS (4)
  - Photopsia [Unknown]
  - Hallucination [Recovered/Resolved]
  - Somnolence [Unknown]
  - Dry mouth [Unknown]

NARRATIVE: CASE EVENT DATE: 20171214
